FAERS Safety Report 11521547 (Version 1)
Quarter: 2015Q3

REPORT INFORMATION
  Report Type: Spontaneous
  Country: US (occurrence: None)
  Receive Date: 20150917
  Receipt Date: 20150917
  Transmission Date: 20151125
  Serious: Yes (Hospitalization)
  Sender: FDA-Public Use
  Company Number: None

PATIENT
  Age: 59 Year
  Sex: Female
  Weight: 65.6 kg

DRUGS (9)
  1. CARBOPLATIN. [Suspect]
     Active Substance: CARBOPLATIN
     Dates: end: 20150807
  2. LORAZEPAM. [Concomitant]
     Active Substance: LORAZEPAM
  3. TAXOL [Suspect]
     Active Substance: PACLITAXEL
     Dates: end: 20150807
  4. MAGNESIUM OXIDE. [Concomitant]
     Active Substance: MAGNESIUM OXIDE
  5. LOPERAMIDE [Concomitant]
     Active Substance: LOPERAMIDE
  6. FLUOXETINE [Concomitant]
     Active Substance: FLUOXETINE\FLUOXETINE HYDROCHLORIDE
  7. HYDROCHLOROTHIAZIDE. [Concomitant]
     Active Substance: HYDROCHLOROTHIAZIDE
  8. CISPLATIN. [Suspect]
     Active Substance: CISPLATIN
     Dates: end: 20150529
  9. NEBIVOLOL. [Concomitant]
     Active Substance: NEBIVOLOL

REACTIONS (5)
  - Cerebral infarction [None]
  - Pancytopenia [None]
  - Muscular weakness [None]
  - Neuropathy peripheral [None]
  - Central nervous system lesion [None]

NARRATIVE: CASE EVENT DATE: 20150830
